FAERS Safety Report 25629253 (Version 1)
Quarter: 2025Q3

REPORT INFORMATION
  Report Type: Spontaneous
  Country: US (occurrence: US)
  Receive Date: 20250731
  Receipt Date: 20250731
  Transmission Date: 20251020
  Serious: No
  Sender: SANOFI AVENTIS
  Company Number: US-SA-2025SA221818

PATIENT
  Sex: Male

DRUGS (21)
  1. DUPIXENT [Suspect]
     Active Substance: DUPILUMAB
     Indication: Pemphigoid
     Dosage: 300 MG, QOW
     Route: 058
  2. ACETAMINOPHEN [Concomitant]
     Active Substance: ACETAMINOPHEN
  3. AMIODARONE HYDROCHLORIDE [Concomitant]
     Active Substance: AMIODARONE HYDROCHLORIDE
  4. AMLODIPINE [Concomitant]
     Active Substance: AMLODIPINE BESYLATE
  5. ACETAMINOPHEN\ASCORBIC ACID [Concomitant]
     Active Substance: ACETAMINOPHEN\ASCORBIC ACID
  6. CARVEDILOL [Concomitant]
     Active Substance: CARVEDILOL
  7. CLOPIDOGREL [Concomitant]
     Active Substance: CLOPIDOGREL BISULFATE
  8. COENZYME Q10 [Concomitant]
     Active Substance: DIETARY SUPPLEMENT\UBIDECARENONE
  9. DOXYCYCLINE [Concomitant]
     Active Substance: DOXYCYCLINE
  10. ELIQUIS [Concomitant]
     Active Substance: APIXABAN
  11. FENOFIBRATE [Concomitant]
     Active Substance: FENOFIBRATE
  12. FUROSEMIDE [Concomitant]
     Active Substance: FUROSEMIDE
  13. GLIPIZIDE [Concomitant]
     Active Substance: GLIPIZIDE
  14. HUMULIN 70/30 [Concomitant]
     Active Substance: INSULIN HUMAN
  15. HYDROXYZINE [Concomitant]
     Active Substance: HYDROXYZINE HYDROCHLORIDE
  16. IPRATROPIUM [Concomitant]
     Active Substance: IPRATROPIUM
  17. ISOSORBIDE [Concomitant]
     Active Substance: ISOSORBIDE
  18. LEVOTHYROXINE [Concomitant]
     Active Substance: LEVOTHYROXINE
  19. ONDANSETRON [Concomitant]
     Active Substance: ONDANSETRON
  20. PRAVASTATIN [Concomitant]
     Active Substance: PRAVASTATIN
  21. SPIRONOLACTONE [Concomitant]
     Active Substance: SPIRONOLACTONE

REACTIONS (1)
  - Fall [Unknown]
